FAERS Safety Report 5885215-8 (Version None)
Quarter: 2008Q3

REPORT INFORMATION
  Report Type: 
  Country: None (occurrence: None)
  Receive Date: 20080915
  Receipt Date: 20080915
  Transmission Date: 20090109
  Serious: Yes (Life-Threatening, Hospitalization)
  Sender: FDA-Public Use
  Company Number: None

PATIENT
  Sex: Male
  Weight: 34.0198 kg

DRUGS (1)
  1. LINDANE [Suspect]
     Indication: LICE INFESTATION
     Dosage: 30ML USED WEEKLY FROM AUGUST07 - JULY 08
     Dates: start: 20070108, end: 20080715

REACTIONS (2)
  - APLASTIC ANAEMIA [None]
  - BONE MARROW TRANSPLANT [None]
